FAERS Safety Report 4480134-6 (Version None)
Quarter: 2004Q4

REPORT INFORMATION
  Report Type: 
  Country: None (occurrence: None)
  Receive Date: 20041018
  Receipt Date: 20041007
  Transmission Date: 20050328
  Serious: Yes (Hospitalization)
  Sender: FDA-Public Use
  Company Number: 2004-120999-NL

PATIENT
  Age: 88 Year
  Sex: Female

DRUGS (4)
  1. MIRTAZAPINE [Suspect]
     Indication: DEPRESSION
     Dosage: 30 MG, ORAL
     Route: 048
     Dates: start: 20040704, end: 20040908
  2. CALCIGRAN [Concomitant]
  3. METOPROLOL SUCCINATE [Concomitant]
  4. ALBYL-E [Concomitant]

REACTIONS (6)
  - ABDOMINAL PAIN [None]
  - DEPRESSED LEVEL OF CONSCIOUSNESS [None]
  - GAMMA-GLUTAMYLTRANSFERASE ABNORMAL [None]
  - NAUSEA [None]
  - TRANSAMINASES INCREASED [None]
  - VOMITING [None]
